FAERS Safety Report 4961151-6 (Version None)
Quarter: 2006Q1

REPORT INFORMATION
  Report Type: 
  Country: None (occurrence: None)
  Receive Date: 20060201
  Receipt Date: 20051028
  Transmission Date: 20060701
  Serious: No
  Sender: FDA-Public Use
  Company Number: 2005PV003767

PATIENT
  Age: 46 Year
  Sex: Male
  Weight: 129.7287 kg

DRUGS (5)
  1. BYETTA [Suspect]
     Indication: DIABETES MELLITUS NON-INSULIN-DEPENDENT
     Dosage: 5 MCG;BID;SC
     Route: 058
     Dates: start: 20051020
  2. GLUCOTROL [Concomitant]
  3. AVANDIA [Concomitant]
  4. GLUCOPHAGE [Concomitant]
  5. ASPIRIN [Concomitant]

REACTIONS (7)
  - ABDOMINAL PAIN UPPER [None]
  - ANOREXIA [None]
  - BLOOD GLUCOSE INCREASED [None]
  - FLATULENCE [None]
  - INJECTION SITE BRUISING [None]
  - NAUSEA [None]
  - WEIGHT DECREASED [None]
